FAERS Safety Report 5534620-8 (Version None)
Quarter: 2007Q4

REPORT INFORMATION
  Report Type: 
  Country: None (occurrence: None)
  Receive Date: 20071205
  Receipt Date: 20071129
  Transmission Date: 20080405
  Serious: Yes (Other)
  Sender: FDA-Public Use
  Company Number: US-JNJFOC-20071111016

PATIENT
  Age: 55 Year
  Sex: Male
  Weight: 90.72 kg

DRUGS (1)
  1. MYLANTA ULTIMATE STRENGTH MINT [Suspect]
     Indication: DYSPEPSIA
     Dosage: 5-10 ML ONCE TOTAL

REACTIONS (2)
  - LIP SWELLING [None]
  - URTICARIA [None]
